FAERS Safety Report 14643908 (Version 3)
Quarter: 2018Q2

REPORT INFORMATION
  Report Type: Spontaneous
  Country: US (occurrence: US)
  Receive Date: 20180315
  Receipt Date: 20180514
  Transmission Date: 20180711
  Serious: No
  Sender: FDA-Public Use
  Company Number: US-MERZ NORTH AMERICA, INC.-18MRZ-00113

PATIENT
  Sex: Female
  Weight: 61.29 kg

DRUGS (3)
  1. XEOMIN [Suspect]
     Active Substance: INCOBOTULINUMTOXINA
     Indication: SKIN WRINKLING
  2. XEOMIN [Suspect]
     Active Substance: INCOBOTULINUMTOXINA
     Indication: SKIN WRINKLING
     Dosage: 12 IU TO CROW^S FEET?12 IU TO GLABELLAR FROWN LINES?16 IU TO FOREHEAD
     Route: 058
     Dates: start: 20180301, end: 20180301
  3. XEOMIN [Suspect]
     Active Substance: INCOBOTULINUMTOXINA
     Indication: SKIN WRINKLING

REACTIONS (3)
  - Optic nerve injury [Not Recovered/Not Resolved]
  - Contusion [Recovered/Resolved]
  - Vision blurred [Recovering/Resolving]
